FAERS Safety Report 9671132 (Version 2)
Quarter: 2013Q4

REPORT INFORMATION
  Report Type: Spontaneous
  Country: US (occurrence: US)
  Receive Date: 20131106
  Receipt Date: 20131125
  Transmission Date: 20140711
  Serious: No
  Sender: FDA-Public Use
  Company Number: US-PFIZER INC-2013313256

PATIENT
  Age: 42 Year
  Sex: Female

DRUGS (6)
  1. ZOLOFT [Suspect]
     Indication: DEPRESSION
     Dosage: 50 MG, UNK
     Route: 048
     Dates: start: 20110926, end: 20110929
  2. MORPHINE SULFATE [Suspect]
     Dosage: UNK
  3. SUDAFED [Suspect]
     Dosage: UNK
  4. CETRIZINE [Concomitant]
     Indication: HYPERSENSITIVITY
     Dosage: 10 MG, DAILY
     Dates: start: 20110725, end: 20120612
  5. EFEXOR XR [Concomitant]
     Indication: DEPRESSION
     Dosage: 75 MG, DAILY
     Dates: start: 20091001, end: 20110926
  6. LOVASTATIN [Concomitant]
     Indication: HYPERLIPIDAEMIA
     Dosage: 20 MG, DAILY
     Dates: start: 20090824

REACTIONS (3)
  - Drug hypersensitivity [Unknown]
  - Rash [Unknown]
  - Urticaria [Recovered/Resolved]
